FAERS Safety Report 6070709-5 (Version None)
Quarter: 2009Q1

REPORT INFORMATION
  Report Type: 
  Country: None (occurrence: None)
  Receive Date: 20090209
  Receipt Date: 20090128
  Transmission Date: 20090719
  Serious: Yes (Disabling)
  Sender: FDA-Public Use
  Company Number: CL-ROCHE-609892

PATIENT
  Sex: Female

DRUGS (3)
  1. XELODA [Suspect]
     Route: 048
     Dates: start: 20080901
  2. GEMZAR [Suspect]
     Route: 042
  3. PREDNISONE [Concomitant]
     Route: 048
     Dates: start: 20071001

REACTIONS (2)
  - DRY EYE [None]
  - KERATITIS [None]
